FAERS Safety Report 17891702 (Version 3)
Quarter: 2021Q3

REPORT INFORMATION
  Report Type: Spontaneous
  Country: US (occurrence: US)
  Receive Date: 20200612
  Receipt Date: 20210719
  Transmission Date: 20211014
  Serious: Yes (Hospitalization, Other)
  Sender: FDA-Public Use
  Company Number: US-TEVA-2020-US-1508898

PATIENT
  Age: 70 Year
  Sex: Female
  Weight: 89.8 kg

DRUGS (7)
  1. ATORVASTATIN [Concomitant]
     Active Substance: ATORVASTATIN
     Indication: HYPERLIPIDAEMIA
     Route: 065
  2. LASIX [Concomitant]
     Active Substance: FUROSEMIDE
     Route: 065
  3. MULTIVITAMIN [Concomitant]
     Active Substance: VITAMINS
     Indication: VITAMIN SUPPLEMENTATION
     Route: 065
  4. VALSARTAN W/HYDROCHLOROTHIAZIDE TEVA [Suspect]
     Active Substance: HYDROCHLOROTHIAZIDE\VALSARTAN
     Indication: HYPERTENSION
     Dosage: VALSARTAN 320 MG/ HYDROCHLOROTHIAZIDE 25 MG
     Route: 065
     Dates: start: 20121001, end: 20150401
  5. DIOVAN HCT [Suspect]
     Active Substance: HYDROCHLOROTHIAZIDE\VALSARTAN
     Indication: HYPERTENSION
     Dosage: VALSARTAN 320 MG/ HYDROCHLOROTHIAZIDE 25 MG
     Route: 065
     Dates: start: 20090127, end: 20121007
  6. METOPROLOL. [Concomitant]
     Active Substance: METOPROLOL
     Indication: HYPERTENSION
     Route: 065
  7. VALSARTAN W/HYDROCHLOROTHIAZIDE ACETERIS [Suspect]
     Active Substance: HYDROCHLOROTHIAZIDE\VALSARTAN
     Indication: HYPERTENSION
     Dosage: VALSARTAN 320 MG/ HYDROCHLOROTHIAZIDE 25 MG
     Route: 065
     Dates: start: 20150330, end: 20180820

REACTIONS (1)
  - Bladder cancer [Not Recovered/Not Resolved]
